FAERS Safety Report 8476864-1 (Version None)
Quarter: 2012Q2

REPORT INFORMATION
  Report Type: 
  Country: None (occurrence: None)
  Receive Date: 20120629
  Receipt Date: 20120621
  Transmission Date: 20120825
  Serious: Yes (Other)
  Sender: FDA-Public Use
  Company Number: US-BIOGENIDEC-2012BI022395

PATIENT
  Age: 45 Year
  Sex: Female

DRUGS (2)
  1. TYSABRI [Suspect]
     Indication: MULTIPLE SCLEROSIS
     Route: 042
     Dates: start: 20101203, end: 20110325
  2. TYSABRI [Suspect]
     Route: 042
     Dates: start: 20111024, end: 20120418

REACTIONS (2)
  - CONVULSION [None]
  - MULTIPLE SCLEROSIS [None]
